FAERS Safety Report 7465091-2 (Version None)
Quarter: 2011Q2

REPORT INFORMATION
  Report Type: 
  Country: None (occurrence: None)
  Receive Date: 20110505
  Receipt Date: 20110505
  Transmission Date: 20111010
  Serious: Yes (Hospitalization)
  Sender: FDA-Public Use
  Company Number: None

PATIENT
  Age: 32 Year
  Sex: Male
  Weight: 60.5 kg

DRUGS (10)
  1. TRAMADOL HYDROCHLORIDE [Concomitant]
  2. NEXIUM [Concomitant]
  3. CLONIDINE [Concomitant]
  4. AZITHROMYCIN [Concomitant]
  5. ZYRTEC [Concomitant]
  6. SEROQUEL XR [Suspect]
     Indication: DEPRESSION
     Dosage: 150MG HS PO RESUMED WITHIN LAST WEEK
     Route: 048
  7. PANCREAZE [Concomitant]
  8. CYMBALTA [Concomitant]
  9. ADVAIR DISKUS 100/50 [Concomitant]
  10. LISINOPRIL [Concomitant]

REACTIONS (3)
  - HEAD TITUBATION [None]
  - DYSTONIA [None]
  - MUSCLE SPASMS [None]
